FAERS Safety Report 4907405-0 (Version None)
Quarter: 2006Q1

REPORT INFORMATION
  Report Type: 
  Country: None (occurrence: None)
  Receive Date: 20060208
  Receipt Date: 20060208
  Transmission Date: 20060701
  Serious: No
  Sender: FDA-Public Use
  Company Number: None

PATIENT

DRUGS (10)
  1. FUROSEMIDE [Suspect]
     Indication: PLEURAL EFFUSION
     Dosage: 20 MG ONCE PO
     Route: 048
     Dates: start: 20051212
  2. ACETAMINOPHEN [Concomitant]
  3. ALBUTEROL MDI INHALANT [Concomitant]
  4. AMOXICILLIN AND CLAVULANATE POTASSIUM [Concomitant]
  5. ASPIRIN [Concomitant]
  6. DEXTROSE [Concomitant]
  7. HEPARIN SODIUM [Concomitant]
  8. LORAZEPAM [Concomitant]
  9. METOPROLOL TARTRATE [Concomitant]
  10. RANITIDINE HCL [Concomitant]

REACTIONS (1)
  - DEHYDRATION [None]
